FAERS Safety Report 15428899 (Version 1)
Quarter: 2018Q3

REPORT INFORMATION
  Report Type: Spontaneous
  Country: NL (occurrence: NL)
  Receive Date: 20180926
  Receipt Date: 20180926
  Transmission Date: 20181010
  Serious: Yes (Hospitalization, Other)
  Sender: FDA-Public Use
  Company Number: NL-CONCORDIA PHARMACEUTICALS INC.-GSH201809-003380

PATIENT
  Age: 30 Year
  Sex: Male

DRUGS (3)
  1. PARNATE [Suspect]
     Active Substance: TRANYLCYPROMINE SULFATE
     Route: 065
  2. 4?METHYLMETHCATHINONE [Suspect]
     Active Substance: 4-METHYLETHCATHINONE
     Indication: DEPRESSION
     Route: 065
  3. PARNATE [Suspect]
     Active Substance: TRANYLCYPROMINE SULFATE
     Indication: DEPRESSION
     Route: 065

REACTIONS (3)
  - Reversible cerebral vasoconstriction syndrome [Unknown]
  - Subarachnoid haemorrhage [Unknown]
  - Drug interaction [Unknown]
